FAERS Safety Report 22276560 (Version 2)
Quarter: 2023Q2

REPORT INFORMATION
  Report Type: Report from Study
  Country: None (occurrence: CD)
  Receive Date: 20230503
  Receipt Date: 20230511
  Transmission Date: 20230722
  Serious: Yes (Other)
  Sender: FDA-Public Use
  Company Number: CD-Medicines Development for Global Health-2141064

PATIENT
  Age: 23 Year
  Sex: Female
  Weight: 51 kg

DRUGS (2)
  1. MOXIDECTIN [Suspect]
     Active Substance: MOXIDECTIN
     Indication: Onchocerciasis
     Route: 048
     Dates: start: 20220618, end: 20220618
  2. MEDROXYPROGESTERONE ACETATE [Concomitant]
     Active Substance: MEDROXYPROGESTERONE ACETATE
     Route: 030
     Dates: start: 20220618, end: 20220618

REACTIONS (1)
  - Abortion spontaneous [Recovered/Resolved]

NARRATIVE: CASE EVENT DATE: 20221012
